FAERS Safety Report 22302285 (Version 1)
Quarter: 2023Q2

REPORT INFORMATION
  Report Type: Spontaneous
  Country: FR (occurrence: FR)
  Receive Date: 20230510
  Receipt Date: 20230510
  Transmission Date: 20230721
  Serious: Yes (Hospitalization, Other)
  Sender: FDA-Public Use
  Company Number: FR-AFSSAPS-AVMP2023000160

PATIENT
  Age: 56 Year
  Sex: Female

DRUGS (1)
  1. OXYCODONE [Suspect]
     Active Substance: OXYCODONE
     Indication: Product used for unknown indication
     Dosage: 420 MILLIGRAM, ONCE A DAY (420 MILLIGRAM, ONCE A DAY (AUGMENTATION POSOLOGIE JUSQU^? 420MG/JOUR EN M
     Route: 048
     Dates: start: 2015, end: 20230309

REACTIONS (3)
  - Drug abuse [Recovered/Resolved]
  - Somnolence [Recovered/Resolved]
  - Respiratory failure [Recovered/Resolved]

NARRATIVE: CASE EVENT DATE: 20150101
